FAERS Safety Report 7779738-4 (Version None)
Quarter: 2011Q3

REPORT INFORMATION
  Report Type: 
  Country: None (occurrence: None)
  Receive Date: 20110927
  Receipt Date: 20100922
  Transmission Date: 20111222
  Serious: No
  Sender: FDA-Public Use
  Company Number: US-ASTRAZENECA-2010SE15005

PATIENT
  Age: 56 Year
  Sex: Female
  Weight: 72.6 kg

DRUGS (9)
  1. SEROQUEL [Suspect]
     Dosage: TOTAL DAILY DOSE 700 MG, THREE TIMES A DAY
     Route: 048
  2. SEROQUEL [Suspect]
     Indication: BIPOLAR DISORDER
     Route: 048
  3. SEROQUEL [Suspect]
     Route: 048
     Dates: start: 20080101
  4. SEROQUEL [Suspect]
     Dosage: TOTAL DAILY DOSE 700 MG, THREE TIMES A DAY
     Route: 048
  5. SEROQUEL [Suspect]
     Route: 048
     Dates: start: 20080101
  6. XANAX [Concomitant]
     Dosage: AS NEEDED
  7. SEROQUEL [Suspect]
     Dosage: 300 MG AT 10 AM AND 6 PM 100 MG
     Route: 048
  8. SEROQUEL [Suspect]
     Indication: ANXIETY
     Route: 048
  9. SEROQUEL [Suspect]
     Dosage: 300 MG AT 10 AM AND 6 PM 100 MG
     Route: 048

REACTIONS (8)
  - PANIC ATTACK [None]
  - INSOMNIA [None]
  - WEIGHT INCREASED [None]
  - FEELING JITTERY [None]
  - FOOD CRAVING [None]
  - TACHYPHRENIA [None]
  - DRUG INEFFECTIVE [None]
  - ANXIETY [None]
